FAERS Safety Report 6597130-5 (Version None)
Quarter: 2010Q1

REPORT INFORMATION
  Report Type: 
  Country: None (occurrence: None)
  Receive Date: 20100223
  Receipt Date: 20100218
  Transmission Date: 20100710
  Serious: Yes (Other)
  Sender: FDA-Public Use
  Company Number: ES-ROXANE LABORATORIES, INC.-2010-RO-00187RO

PATIENT
  Age: 3 Month
  Sex: Female

DRUGS (6)
  1. IPRATROPIUM BROMIDE [Suspect]
     Indication: BRONCHIOLITIS
  2. OXYGEN [Suspect]
     Indication: BRONCHIOLITIS
  3. ALBUTEROL [Suspect]
     Indication: BRONCHIOLITIS
  4. ADRENALINE [Suspect]
     Indication: BRONCHIOLITIS
  5. CORTISOL [Suspect]
     Indication: BRONCHIOLITIS
     Route: 042
  6. CEFOTAXIME [Suspect]
     Indication: BRONCHIOLITIS

REACTIONS (2)
  - MYDRIASIS [None]
  - PUPILS UNEQUAL [None]
